FAERS Safety Report 4401730-8 (Version None)
Quarter: 2004Q3

REPORT INFORMATION
  Report Type: 
  Country: None (occurrence: None)
  Receive Date: 20040714
  Receipt Date: 20040630
  Transmission Date: 20050211
  Serious: Yes (Other)
  Sender: FDA-Public Use
  Company Number: USA030844143

PATIENT
  Age: 55 Year
  Sex: Female
  Weight: 70 kg

DRUGS (11)
  1. FORTEO [Suspect]
     Indication: OSTEOPOROSIS
     Dosage: 20 UG DAY
     Dates: start: 20030812
  2. METOPROLOL TARTRATE [Concomitant]
  3. ACCUPRIL [Concomitant]
  4. HYROCHLOROTHIAZIDE [Concomitant]
  5. PROTONIX [Concomitant]
  6. PLAVIX [Concomitant]
  7. ASPIRIN TAB [Concomitant]
  8. LIPITOR [Concomitant]
  9. VITAMIN D [Concomitant]
  10. VICODIN [Concomitant]
  11. TYLENOL [Concomitant]

REACTIONS (9)
  - ARTHRALGIA [None]
  - BONE PAIN [None]
  - CHOLELITHIASIS [None]
  - CONTUSION [None]
  - INJECTION SITE ERYTHEMA [None]
  - INJECTION SITE HAEMORRHAGE [None]
  - INJECTION SITE RASH [None]
  - PHARMACEUTICAL PRODUCT COMPLAINT [None]
  - VITAMIN D DEFICIENCY [None]
